FAERS Safety Report 8391980-0 (Version None)
Quarter: 2012Q2

REPORT INFORMATION
  Report Type: 
  Country: None (occurrence: None)
  Receive Date: 20120529
  Receipt Date: 20120524
  Transmission Date: 20120825
  Serious: Yes (Hospitalization)
  Sender: FDA-Public Use
  Company Number: PL-ROCHE-711320

PATIENT
  Sex: Female
  Weight: 45 kg

DRUGS (5)
  1. METHOTREXATE [Concomitant]
     Indication: RHEUMATOID ARTHRITIS
     Dosage: DOSE:20
     Route: 048
  2. DICLAC [Concomitant]
     Indication: RHEUMATOID ARTHRITIS
     Dosage: DOSE:50
     Route: 048
  3. MABTHERA [Suspect]
     Indication: RHEUMATOID ARTHRITIS
     Dosage: DOSE: 1,0
     Route: 042
  4. FOLIC ACID [Concomitant]
     Indication: RHEUMATOID ARTHRITIS
     Dosage: DOSE: 15
     Route: 048
  5. PREDNISONE [Concomitant]
     Indication: RHEUMATOID ARTHRITIS
     Dosage: DOSE:10
     Route: 048

REACTIONS (1)
  - DEPRESSION [None]
